FAERS Safety Report 10156045 (Version 2)
Quarter: 2014Q2

REPORT INFORMATION
  Report Type: Spontaneous
  Country: US (occurrence: US)
  Receive Date: 20140506
  Receipt Date: 20140506
  Transmission Date: 20141212
  Serious: Yes (Life-Threatening, Hospitalization, Disabling, Other)
  Sender: FDA-Public Use
  Company Number: US-009507513-1008USA00877

PATIENT
  Sex: Male
  Weight: 158 kg

DRUGS (10)
  1. VYTORIN [Suspect]
     Dosage: 10-80
     Route: 048
     Dates: end: 20090314
  2. VERAPAMIL [Suspect]
     Dosage: 180 MG, QD
     Route: 048
  3. FENOFIBRATE [Suspect]
     Indication: DYSLIPIDAEMIA
     Dosage: 145 MG, QD
     Route: 048
     Dates: end: 20090314
  4. LEVOTIROXINA S.O [Suspect]
     Dosage: 200 MICROGRAM, QD
     Route: 048
  5. KETOCONAZOLE [Interacting]
     Indication: PROSTATE CANCER RECURRENT
     Dosage: 400 MG, TID
     Route: 048
     Dates: start: 200901
  6. KETOCONAZOLE [Interacting]
     Dosage: 400 MG, TID
     Route: 048
     Dates: start: 200902, end: 20090314
  7. METICORTEN [Suspect]
     Indication: PROSTATE CANCER
     Dosage: 10 ?G, QD
     Route: 048
     Dates: start: 200901
  8. LEUPROLIDE ACETATE [Suspect]
     Indication: PROSTATE CANCER
     Dosage: 22.5 MG, QM3
     Route: 030
     Dates: start: 200301, end: 200601
  9. LEUPROLIDE ACETATE [Suspect]
     Dosage: 22.5 MG, QM3
     Route: 030
     Dates: start: 200707
  10. ZOCOR [Suspect]
     Indication: DYSLIPIDAEMIA
     Dosage: UNK UNK, QD
     Route: 048

REACTIONS (5)
  - Renal failure acute [Recovered/Resolved]
  - Drug interaction [Recovering/Resolving]
  - Hepatotoxicity [Recovered/Resolved]
  - Rhabdomyolysis [Recovered/Resolved]
  - Off label use [Unknown]
